FAERS Safety Report 15553643 (Version 1)
Quarter: 2018Q4

REPORT INFORMATION
  Report Type: Report from Study
  Country: AR (occurrence: AR)
  Receive Date: 20181026
  Receipt Date: 20181026
  Transmission Date: 20190205
  Serious: Yes (Death, Hospitalization)
  Sender: FDA-Public Use
  Company Number: AR-EMD SERONO-E2B_90063465

PATIENT
  Age: 54 Year
  Sex: Male

DRUGS (1)
  1. REBIF [Suspect]
     Active Substance: INTERFERON BETA-1A
     Indication: MULTIPLE SCLEROSIS
     Route: 058
     Dates: start: 20061108

REACTIONS (3)
  - Multiple sclerosis relapse [Unknown]
  - Bacterial infection [Unknown]
  - Death [Fatal]

NARRATIVE: CASE EVENT DATE: 20181020
